FAERS Safety Report 15989731 (Version 12)
Quarter: 2023Q4

REPORT INFORMATION
  Report Type: Report from Study
  Country: GB (occurrence: GB)
  Receive Date: 20190221
  Receipt Date: 20231205
  Transmission Date: 20240110
  Serious: Yes (Hospitalization, Other)
  Sender: FDA-Public Use
  Company Number: PHHY2019GB038186

PATIENT
  Sex: Male

DRUGS (10)
  1. COSENTYX [Suspect]
     Active Substance: SECUKINUMAB
     Indication: Psoriatic arthropathy
     Dosage: 300 MG (1 DOSE)
     Route: 065
     Dates: start: 20180102, end: 20180129
  2. COSENTYX [Suspect]
     Active Substance: SECUKINUMAB
     Dosage: 300 MG (2 DOSE))
     Route: 065
     Dates: start: 20180130, end: 20181016
  3. COSENTYX [Suspect]
     Active Substance: SECUKINUMAB
     Dosage: 150 MG (3 DOSE)
     Route: 065
     Dates: start: 20181017, end: 20220608
  4. MIRTAZAPINE [Concomitant]
     Active Substance: MIRTAZAPINE
     Indication: Depression
     Dosage: 45 MG, QD
     Route: 048
     Dates: start: 20151023
  5. PROCHLORPERAZINE [Concomitant]
     Active Substance: PROCHLORPERAZINE
     Indication: Psoriatic arthropathy
     Dosage: 3 MG, BID
     Route: 048
     Dates: start: 20160520
  6. CYCLIZINE [Concomitant]
     Active Substance: CYCLIZINE
     Indication: Psoriatic arthropathy
     Dosage: 50 MG, TID
     Route: 048
     Dates: start: 20150319
  7. QUININE SULFATE [Concomitant]
     Active Substance: QUININE SULFATE
     Indication: Muscle spasms
     Dosage: 300 MG, QD
     Route: 048
     Dates: start: 20170411
  8. RAMIPRIL [Concomitant]
     Active Substance: RAMIPRIL
     Indication: Hypertension
     Dosage: 5 MG, QD
     Route: 048
     Dates: start: 20170628
  9. ZOLPIDEM [Concomitant]
     Active Substance: ZOLPIDEM TARTRATE
     Indication: Insomnia
     Dosage: 10 MG, BID
     Route: 048
     Dates: start: 20180101
  10. CYCLOSPORINE [Concomitant]
     Active Substance: CYCLOSPORINE
     Indication: Psoriatic arthropathy
     Dosage: 50 MG
     Route: 065
     Dates: start: 20171031, end: 20190514

REACTIONS (22)
  - Lower respiratory tract infection [Recovered/Resolved]
  - Pyrexia [Unknown]
  - Cough [Unknown]
  - Malaise [Unknown]
  - Hallucination [Recovered/Resolved]
  - Delirium [Recovered/Resolved]
  - Circulatory collapse [Recovered/Resolved]
  - Pallor [Unknown]
  - Cold sweat [Unknown]
  - Abdominal hernia [Not Recovered/Not Resolved]
  - Umbilical hernia [Not Recovered/Not Resolved]
  - Abdominal pain [Not Recovered/Not Resolved]
  - Psoriatic arthropathy [Recovered/Resolved]
  - Psoriatic arthropathy [Recovered/Resolved]
  - Psoriatic arthropathy [Recovered/Resolved]
  - Psoriatic arthropathy [Recovered/Resolved]
  - Psoriatic arthropathy [Recovered/Resolved]
  - Renal impairment [Recovered/Resolved with Sequelae]
  - Renal impairment [Recovered/Resolved]
  - Diarrhoea [Recovered/Resolved]
  - Nail psoriasis [Not Recovered/Not Resolved]
  - Nausea [Recovered/Resolved]

NARRATIVE: CASE EVENT DATE: 20180823
